FAERS Safety Report 6474611-6 (Version None)
Quarter: 2009Q4

REPORT INFORMATION
  Report Type: 
  Country: None (occurrence: None)
  Receive Date: 20091204
  Receipt Date: 20090219
  Transmission Date: 20100525
  Serious: Yes (Life-Threatening, Hospitalization, Other)
  Sender: FDA-Public Use
  Company Number: US-ELI_LILLY_AND_COMPANY-US200901003861

PATIENT
  Sex: Female

DRUGS (5)
  1. FORTEO [Suspect]
     Indication: OSTEOPOROSIS
     Dosage: UNK, UNK
     Dates: start: 20090101
  2. POTASSIUM [Concomitant]
     Dates: start: 20080101
  3. CALCIUM                                 /N/A/ [Concomitant]
  4. HERBAL PREPARATION [Concomitant]
  5. HYDROCODONE [Concomitant]

REACTIONS (12)
  - ARTHRALGIA [None]
  - BLOOD POTASSIUM DECREASED [None]
  - BONE PAIN [None]
  - BURNING SENSATION [None]
  - FIBROMYALGIA [None]
  - HEPATITIS C [None]
  - HYPERSENSITIVITY [None]
  - HYPOTHYROIDISM [None]
  - MUSCLE SPASMS [None]
  - MYALGIA [None]
  - PAIN IN EXTREMITY [None]
  - RESPIRATORY ARREST [None]
